FAERS Safety Report 8394978-1 (Version None)
Quarter: 2012Q2

REPORT INFORMATION
  Report Type: 
  Country: None (occurrence: None)
  Receive Date: 20120530
  Receipt Date: 20120319
  Transmission Date: 20120825
  Serious: No
  Sender: FDA-Public Use
  Company Number: US-GLAXOSMITHKLINE-A0970854A

PATIENT
  Age: 52 Year
  Sex: Female

DRUGS (5)
  1. FUROSEMIDE [Concomitant]
  2. REVATIO [Concomitant]
  3. COUMADIN [Concomitant]
  4. LETAIRIS [Concomitant]
  5. FLOLAN [Suspect]
     Indication: PULMONARY ARTERIAL HYPERTENSION
     Dates: start: 20040528

REACTIONS (2)
  - INFECTION [None]
  - BRONCHIAL IRRITATION [None]
